FAERS Safety Report 8596960-8 (Version None)
Quarter: 2012Q3

REPORT INFORMATION
  Report Type: 
  Country: None (occurrence: None)
  Receive Date: 20120815
  Receipt Date: 20120508
  Transmission Date: 20120928
  Serious: No
  Sender: FDA-Public Use
  Company Number: US-ALLERGAN-1206588US

PATIENT
  Age: 43 Year
  Sex: Male

DRUGS (1)
  1. OZURDEX [Suspect]
     Indication: CYSTOID MACULAR OEDEMA
     Dosage: UNK
     Route: 047
     Dates: start: 20120501, end: 20120501

REACTIONS (2)
  - HYPOTONIA [None]
  - VITREOUS LOSS [None]
